FAERS Safety Report 4833407-9 (Version None)
Quarter: 2005Q4

REPORT INFORMATION
  Report Type: 
  Country: None (occurrence: None)
  Receive Date: 20051118
  Receipt Date: 20051108
  Transmission Date: 20060501
  Serious: Yes (Other)
  Sender: FDA-Public Use
  Company Number: 2005152881

PATIENT
  Sex: Female
  Weight: 88.4514 kg

DRUGS (7)
  1. GLIBENCLAMIDE TABLET (GLIBENCLAMIDE) [Suspect]
     Indication: DIABETES MELLITUS
     Dosage: (3 MG, 2 IN 1 D)
  2. ZOLOFT [Suspect]
     Indication: DEPRESSION
  3. ACTOS [Suspect]
     Indication: DIABETES MELLITUS
  4. LISINOPRIL [Suspect]
     Indication: HYPERTENSION
  5. DARVOCET-N 100 [Concomitant]
  6. ROBAXIN [Concomitant]
  7. FLEXERIL [Concomitant]

REACTIONS (16)
  - BLOOD POTASSIUM DECREASED [None]
  - BLOOD PRESSURE INCREASED [None]
  - CARDIAC FAILURE [None]
  - CONDITION AGGRAVATED [None]
  - COUGH [None]
  - DEPRESSION [None]
  - DIABETES MELLITUS INADEQUATE CONTROL [None]
  - DRUG INEFFECTIVE [None]
  - EMPHYSEMA [None]
  - FATIGUE [None]
  - FLUID RETENTION [None]
  - OSTEOPOROSIS [None]
  - PNEUMONIA [None]
  - ROAD TRAFFIC ACCIDENT [None]
  - TOOTH DISORDER [None]
  - WEIGHT INCREASED [None]
